FAERS Safety Report 20145743 (Version 1)
Quarter: 2021Q4

REPORT INFORMATION
  Report Type: Spontaneous
  Country: US (occurrence: None)
  Receive Date: 20211202
  Receipt Date: 20211202
  Transmission Date: 20220303
  Serious: No
  Sender: FDA-Public Use
  Company Number: None

PATIENT

DRUGS (1)
  1. POTASSIUM PHOSPHATES [Suspect]
     Active Substance: POTASSIUM PHOSPHATE, DIBASIC\POTASSIUM PHOSPHATE, MONOBASIC

REACTIONS (5)
  - Packaging design issue [None]
  - Product label issue [None]
  - Incorrect dose administered [None]
  - Product preparation error [None]
  - Manufacturing materials issue [None]
